FAERS Safety Report 7385194-0 (Version None)
Quarter: 2011Q1

REPORT INFORMATION
  Report Type: 
  Country: None (occurrence: None)
  Receive Date: 20110330
  Receipt Date: 20110124
  Transmission Date: 20110831
  Serious: No
  Sender: FDA-Public Use
  Company Number: US-MYLANLABS-2010S1022127

PATIENT
  Age: 56 Year
  Sex: Male

DRUGS (2)
  1. HYDRALAZINE HCL [Concomitant]
     Indication: BLOOD PRESSURE INCREASED
  2. NIFEDIPINE [Suspect]
     Indication: BLOOD PRESSURE INCREASED
     Route: 048
     Dates: start: 20101030, end: 20101129

REACTIONS (2)
  - BLOOD PRESSURE INCREASED [None]
  - DRUG INEFFECTIVE [None]
